FAERS Safety Report 14315577 (Version 1)
Quarter: 2017Q4

REPORT INFORMATION
  Report Type: Report from Study
  Country: None (occurrence: US)
  Receive Date: 20171221
  Receipt Date: 20171221
  Transmission Date: 20180321
  Serious: Yes (Other)
  Sender: FDA-Public Use
  Company Number: US-ABBVIE-16P-163-1804876-00

PATIENT
  Sex: Female
  Weight: 59.02 kg

DRUGS (19)
  1. VENCLEXTA [Suspect]
     Active Substance: VENETOCLAX
     Indication: CHRONIC LYMPHOCYTIC LEUKAEMIA
     Dosage: AS DIRECTED
     Route: 048
     Dates: start: 20161001
  2. ALBUTEROL. [Concomitant]
     Active Substance: ALBUTEROL
     Indication: PRODUCT USED FOR UNKNOWN INDICATION
  3. ALLOPURINOL. [Concomitant]
     Active Substance: ALLOPURINOL
     Indication: CHEMOTHERAPY
  4. VITAMIN D [Concomitant]
     Active Substance: CHOLECALCIFEROL
     Indication: NUTRITIONAL SUPPLEMENTATION
  5. GLIMEPIRIDE. [Concomitant]
     Active Substance: GLIMEPIRIDE
     Indication: DIABETES MELLITUS
     Route: 048
  6. LOSARTAN POTASSIUM. [Concomitant]
     Active Substance: LOSARTAN POTASSIUM
     Indication: CARDIAC DISORDER
     Route: 048
  7. OFATUMUMAB [Concomitant]
     Active Substance: OFATUMUMAB
     Indication: CHRONIC LYMPHOCYTIC LEUKAEMIA
  8. ASPIRIN. [Concomitant]
     Active Substance: ASPIRIN
     Indication: PRODUCT USED FOR UNKNOWN INDICATION
     Route: 048
  9. LASIX [Concomitant]
     Active Substance: FUROSEMIDE
     Indication: PRODUCT USED FOR UNKNOWN INDICATION
  10. CARVEDILOL. [Concomitant]
     Active Substance: CARVEDILOL
     Indication: CARDIAC DISORDER
     Dosage: TWICE DAILY
     Route: 048
  11. BENZONATATE. [Concomitant]
     Active Substance: BENZONATATE
     Indication: PRODUCT USED FOR UNKNOWN INDICATION
  12. DICLOFENAC SODIUM. [Concomitant]
     Active Substance: DICLOFENAC SODIUM
     Indication: PRODUCT USED FOR UNKNOWN INDICATION
  13. MEGACE [Concomitant]
     Active Substance: MEGESTROL ACETATE
     Indication: INCREASED APPETITE
  14. LEVAQUIN [Concomitant]
     Active Substance: LEVOFLOXACIN
     Indication: PRODUCT USED FOR UNKNOWN INDICATION
  15. VITAMIN B3 [Concomitant]
     Active Substance: NIACIN
     Indication: NUTRITIONAL SUPPLEMENTATION
     Route: 048
     Dates: start: 2014
  16. VENCLEXTA [Suspect]
     Active Substance: VENETOCLAX
     Route: 048
     Dates: start: 20170619
  17. ATORVASTATIN [Concomitant]
     Active Substance: ATORVASTATIN
     Indication: HYPERTENSION
  18. TRULICITY [Concomitant]
     Active Substance: DULAGLUTIDE
     Indication: DIABETES MELLITUS
     Dosage: 75MG/0.5ML
     Route: 048
  19. IMBRUVICA [Concomitant]
     Active Substance: IBRUTINIB
     Indication: PRODUCT USED FOR UNKNOWN INDICATION

REACTIONS (4)
  - Malaise [Recovering/Resolving]
  - Decreased appetite [Unknown]
  - Urinary tract obstruction [Recovering/Resolving]
  - Nausea [Recovering/Resolving]
